FAERS Safety Report 8104687-1 (Version None)
Quarter: 2012Q1

REPORT INFORMATION
  Report Type: 
  Country: None (occurrence: None)
  Receive Date: 20120201
  Receipt Date: 20120126
  Transmission Date: 20120608
  Serious: Yes (Other)
  Sender: FDA-Public Use
  Company Number: JP-PFIZER INC-2011287735

PATIENT
  Age: 38 Year
  Sex: Female

DRUGS (5)
  1. PROVERA [Suspect]
     Dosage: 1.25 MG, 1X/DAY
     Route: 048
     Dates: start: 20111231, end: 20111231
  2. PROVERA [Suspect]
     Indication: ASSISTED FERTILISATION
     Dosage: 2.5 MG, 2X/DAY
     Route: 048
     Dates: start: 20111124, end: 20111124
  3. PROVERA [Suspect]
     Dosage: 1.25 MG, 1X/DAY
     Route: 048
     Dates: start: 20120102, end: 20120105
  4. PROVERA [Suspect]
     Dosage: 2.5 MG, 2X/DAY
     Route: 048
     Dates: start: 20111226, end: 20111230
  5. PROVERA [Suspect]
     Indication: OFF LABEL USE
     Dosage: 5 MG, 2X/DAY
     Route: 048
     Dates: start: 20111121, end: 20111123

REACTIONS (3)
  - PAIN IN EXTREMITY [None]
  - THROMBOSIS [None]
  - OEDEMA PERIPHERAL [None]
